FAERS Safety Report 5069672-5 (Version None)
Quarter: 2006Q3

REPORT INFORMATION
  Report Type: 
  Country: None (occurrence: None)
  Receive Date: 20060714
  Receipt Date: 20060406
  Transmission Date: 20061208
  Serious: No
  Sender: FDA-Public Use
  Company Number: 2006SP001573

PATIENT
  Age: 69 Year
  Sex: Male

DRUGS (7)
  1. LUNESTA [Suspect]
     Indication: INSOMNIA
     Dosage: 3 MG;HS;ORAL
     Route: 048
     Dates: start: 20060405, end: 20060405
  2. LOPID [Concomitant]
  3. CALAN [Concomitant]
  4. AMBIEN [Concomitant]
  5. TEMAZEPAM [Concomitant]
  6. LORAZEPAM [Concomitant]
  7. TYLENOL (CAPLET) [Concomitant]

REACTIONS (4)
  - DIZZINESS [None]
  - DRUG INEFFECTIVE [None]
  - DYSGEUSIA [None]
  - INITIAL INSOMNIA [None]
